FAERS Safety Report 9830156 (Version 5)
Quarter: 2014Q2

REPORT INFORMATION
  Report Type: Report from Study
  Country: US (occurrence: US)
  Receive Date: 20140120
  Receipt Date: 20140625
  Transmission Date: 20141212
  Serious: Yes (Other)
  Sender: FDA-Public Use
  Company Number: US-SA-2013SA131498

PATIENT
  Age: 62 Year
  Sex: Male

DRUGS (11)
  1. AUBAGIO [Suspect]
     Indication: MULTIPLE SCLEROSIS
     Route: 048
     Dates: start: 20131201, end: 2014
  2. GABAPENTIN [Concomitant]
     Indication: NEUROPATHY PERIPHERAL
     Route: 065
     Dates: start: 1986
  3. ALLOPURINOL [Concomitant]
     Indication: GOUT
     Route: 065
     Dates: start: 1986
  4. FENOFIBRATE [Concomitant]
     Indication: BLOOD CHOLESTEROL
     Route: 065
     Dates: start: 201301
  5. TERAZOSIN [Concomitant]
     Indication: PROSTATIC DISORDER
     Route: 065
     Dates: start: 2006
  6. ETODOLAC [Concomitant]
     Indication: ARTHRITIS
     Route: 065
     Dates: start: 2001
  7. ETODOLAC [Concomitant]
     Indication: NECK INJURY
     Route: 065
     Dates: start: 2001
  8. IBUPROFEN [Concomitant]
     Indication: ARTHRITIS
     Route: 065
  9. ALLEGRA [Concomitant]
     Indication: SEASONAL ALLERGY
     Route: 065
  10. ASPIRIN [Concomitant]
     Indication: PROPHYLAXIS
     Route: 065
  11. COPAXONE [Concomitant]

REACTIONS (3)
  - Stress fracture [Unknown]
  - Somnolence [Unknown]
  - Diarrhoea [Recovering/Resolving]
